FAERS Safety Report 5656583-7 (Version None)
Quarter: 2008Q1

REPORT INFORMATION
  Report Type: 
  Country: None (occurrence: None)
  Receive Date: 20080310
  Receipt Date: 20080225
  Transmission Date: 20080703
  Serious: Yes (Hospitalization)
  Sender: FDA-Public Use
  Company Number: US-BAYER-200815152NA

PATIENT
  Age: 71 Year
  Sex: Female

DRUGS (2)
  1. UTRAVIST - 300 SINGLE DOSE VIAL [Suspect]
     Indication: COMPUTERISED TOMOGRAM
     Route: 042
     Dates: start: 20080123, end: 20080123
  2. ORAL CONTRAT [Concomitant]
     Indication: COMPUTERISED TOMOGRAM
     Route: 048
     Dates: start: 20080123, end: 20080123

REACTIONS (3)
  - CYANOSIS [None]
  - DYSPNOEA [None]
  - PALLOR [None]
